FAERS Safety Report 18128011 (Version 2)
Quarter: 2020Q3

REPORT INFORMATION
  Report Type: Spontaneous
  Country: SE (occurrence: SE)
  Receive Date: 20200810
  Receipt Date: 20200820
  Transmission Date: 20201103
  Serious: Yes (Other)
  Sender: FDA-Public Use
  Company Number: SE-CELLTRION INC.-2020SE023543

PATIENT

DRUGS (7)
  1. RITEMVIA [Suspect]
     Active Substance: RITUXIMAB
     Dosage: 900 MG EVERY OTHER MONTH (900 MG,1 IN 2 M) MAINTENANCE TREATMENT
     Route: 042
     Dates: start: 201908, end: 202004
  2. IBRUTINIB [Concomitant]
     Active Substance: IBRUTINIB
     Indication: MANTLE CELL LYMPHOMA
     Dosage: 560 MG MAINTENANCE DOSE
     Route: 065
     Dates: start: 201907
  3. RITEMVIA [Suspect]
     Active Substance: RITUXIMAB
     Dosage: 30 MG (900 MG,1 IN 1 M)
     Route: 042
     Dates: start: 201903, end: 201908
  4. RITEMVIA [Suspect]
     Active Substance: RITUXIMAB
     Indication: MANTLE CELL LYMPHOMA
     Dosage: 900 MG,11 CYCLICAL
     Route: 065
  5. TRUXIMA [Suspect]
     Active Substance: RITUXIMAB-ABBS
     Indication: MANTLE CELL LYMPHOMA
     Dosage: 900 MG EVERY OTHER MONTH (15 ML OF ACTIVE SUBSTANCE)
     Route: 042
     Dates: start: 20200616
  6. TRUXIMA [Suspect]
     Active Substance: RITUXIMAB-ABBS
     Dosage: 900 MG EVERY OTHER MONTH (15 ML OF ACTIVE SUBSTANCE)
     Route: 042
     Dates: start: 20200616
  7. BETAPRED [Concomitant]
     Active Substance: BETAMETHASONE SODIUM PHOSPHATE
     Indication: PROPHYLAXIS
     Dosage: 4 MG
     Route: 048

REACTIONS (7)
  - Fatigue [Recovered/Resolved]
  - Hypotension [Recovered/Resolved]
  - Drug ineffective [Unknown]
  - Unresponsive to stimuli [Recovered/Resolved]
  - Syncope [Recovered/Resolved]
  - Oxygen saturation decreased [Recovered/Resolved]
  - Off label use [Unknown]

NARRATIVE: CASE EVENT DATE: 20200616
